FAERS Safety Report 15476053 (Version 2)
Quarter: 2018Q4

REPORT INFORMATION
  Report Type: Spontaneous
  Country: ES (occurrence: ES)
  Receive Date: 20181009
  Receipt Date: 20181031
  Transmission Date: 20190205
  Serious: Yes (Other)
  Sender: FDA-Public Use
  Company Number: ES-TOLMAR, INC.-2018ES009949

PATIENT

DRUGS (10)
  1. TORASEMIDE [Concomitant]
     Active Substance: TORSEMIDE
  2. OLMESARTAN [Concomitant]
     Active Substance: OLMESARTAN
  3. ROSUVASTATIN. [Concomitant]
     Active Substance: ROSUVASTATIN
  4. REPAGLINIDE. [Concomitant]
     Active Substance: REPAGLINIDE
  5. ELIGARD [Suspect]
     Active Substance: LEUPROLIDE ACETATE
     Indication: PRODUCT USED FOR UNKNOWN INDICATION
     Dosage: 1 VIAL, Q3MONTHS
     Route: 065
     Dates: start: 20160606
  6. METFORMIN [Concomitant]
     Active Substance: METFORMIN HYDROCHLORIDE
  7. RAMIPRIL. [Concomitant]
     Active Substance: RAMIPRIL
  8. XTANDI [Suspect]
     Active Substance: ENZALUTAMIDE
     Indication: PRODUCT USED FOR UNKNOWN INDICATION
     Dosage: 160 MG, (4 DF) DAILY
     Route: 048
     Dates: start: 20171122
  9. VILDAGLIPTIN [Concomitant]
     Active Substance: VILDAGLIPTIN
  10. BICALUTAMIDE. [Concomitant]
     Active Substance: BICALUTAMIDE

REACTIONS (5)
  - Pancreatic cyst [Unknown]
  - Prostatic specific antigen increased [Unknown]
  - Autonomic nervous system imbalance [Unknown]
  - Prostate cancer [Unknown]
  - Hepatic cyst [Unknown]
